FAERS Safety Report 6375371-X (Version None)
Quarter: 2009Q3

REPORT INFORMATION
  Report Type: 
  Country: None (occurrence: None)
  Receive Date: 20090924
  Receipt Date: 20090917
  Transmission Date: 20100115
  Serious: Yes (Hospitalization, Other)
  Sender: FDA-Public Use
  Company Number: PHHO2009RU08990

PATIENT
  Sex: Male
  Weight: 97 kg

DRUGS (1)
  1. ACZ885 ACZ+ [Suspect]
     Indication: GOUT
     Dosage: 50 MG, ONCE/SINGLE
     Dates: start: 20090518

REACTIONS (3)
  - ABDOMINAL PAIN [None]
  - APPENDICECTOMY [None]
  - APPENDICITIS [None]
